FAERS Safety Report 19679434 (Version 1)
Quarter: 2021Q3

REPORT INFORMATION
  Report Type: Spontaneous
  Country: US (occurrence: US)
  Receive Date: 20210809
  Receipt Date: 20210809
  Transmission Date: 20211014
  Serious: Yes (Hospitalization)
  Sender: FDA-Public Use
  Company Number: NVSC2021US178310

PATIENT
  Sex: Male

DRUGS (2)
  1. RANITIDINE. [Suspect]
     Active Substance: RANITIDINE
     Indication: GASTROOESOPHAGEAL REFLUX DISEASE
     Dosage: 25 TO 150 MG, BID
     Route: 048
     Dates: start: 200906, end: 201901
  2. RANITIDINE. [Suspect]
     Active Substance: RANITIDINE
     Indication: GASTROOESOPHAGEAL REFLUX DISEASE
     Dosage: 25 TO 150 MG, BID
     Route: 048
     Dates: start: 200906, end: 201901

REACTIONS (2)
  - Bladder cancer [Recovering/Resolving]
  - Colorectal cancer stage III [Recovering/Resolving]
